FAERS Safety Report 13033417 (Version 2)
Quarter: 2017Q1

REPORT INFORMATION
  Report Type: Report from Study
  Country: US (occurrence: US)
  Receive Date: 20161216
  Receipt Date: 20170217
  Transmission Date: 20170428
  Serious: Yes (Other)
  Sender: FDA-Public Use
  Company Number: US-ALEXION PHARMACEUTICALS INC.-A201609656

PATIENT
  Age: 11 Year
  Sex: Female

DRUGS (1)
  1. STRENSIQ [Suspect]
     Active Substance: ASFOTASE ALFA
     Indication: HYPOPHOSPHATASIA
     Dosage: UNK
     Route: 058

REACTIONS (7)
  - Weight bearing difficulty [Recovering/Resolving]
  - Injection site reaction [Unknown]
  - Lipodystrophy acquired [Not Recovered/Not Resolved]
  - Injection site warmth [Recovering/Resolving]
  - Injection site pain [Recovering/Resolving]
  - Injection site urticaria [Unknown]
  - Pyrexia [Unknown]

NARRATIVE: CASE EVENT DATE: 20160303
